FAERS Safety Report 21623161 (Version 1)
Quarter: 2022Q4

REPORT INFORMATION
  Report Type: Spontaneous
  Country: US (occurrence: US)
  Receive Date: 20221121
  Receipt Date: 20221121
  Transmission Date: 20230113
  Serious: No
  Sender: FDA-Public Use
  Company Number: US-SA-SAC20221115001839

PATIENT
  Age: 84 Year
  Sex: Male

DRUGS (2)
  1. LOVENOX [Suspect]
     Active Substance: ENOXAPARIN SODIUM
     Dosage: 90 MG TOTAL
     Route: 065
     Dates: start: 20221020
  2. LOVENOX [Suspect]
     Active Substance: ENOXAPARIN SODIUM
     Dosage: 90M, 2X/DAY(BID)

REACTIONS (2)
  - International normalised ratio decreased [Unknown]
  - Contusion [Unknown]
